FAERS Safety Report 10446156 (Version 1)
Quarter: 2014Q3

REPORT INFORMATION
  Report Type: Spontaneous
  Country: US (occurrence: US)
  Receive Date: 20140910
  Receipt Date: 20140910
  Transmission Date: 20150326
  Serious: Yes (Other)
  Sender: FDA-Public Use
  Company Number: US-JNJFOC-20140903719

PATIENT
  Sex: Male

DRUGS (3)
  1. IMODIUM A-D [Suspect]
     Active Substance: LOPERAMIDE HYDROCHLORIDE
     Indication: DIARRHOEA
     Route: 065
  2. IMODIUM A-D [Suspect]
     Active Substance: LOPERAMIDE HYDROCHLORIDE
     Route: 065
  3. SUTENT [Suspect]
     Active Substance: SUNITINIB MALATE
     Indication: PRODUCT USED FOR UNKNOWN INDICATION
     Route: 065
     Dates: start: 20140804

REACTIONS (9)
  - Asthenia [Unknown]
  - Activities of daily living impaired [Unknown]
  - Pyrexia [Unknown]
  - Arthralgia [Unknown]
  - Haematochezia [Recovered/Resolved]
  - Hypertension [Unknown]
  - Erythema [Unknown]
  - Peripheral swelling [Unknown]
  - Drug ineffective [Unknown]
